FAERS Safety Report 11273921 (Version 1)
Quarter: 2015Q3

REPORT INFORMATION
  Report Type: Spontaneous
  Country: FR (occurrence: FR)
  Receive Date: 20150715
  Receipt Date: 20150715
  Transmission Date: 20151125
  Serious: Yes (Death)
  Sender: FDA-Public Use
  Company Number: CHPA2015FR002422

PATIENT
  Age: 7 Month
  Sex: Female

DRUGS (1)
  1. SCOPODERM TTS [Suspect]
     Active Substance: SCOPOLAMINE
     Indication: UPPER AIRWAY OBSTRUCTION
     Dosage: 0.5 MG, Q72H
     Route: 062
     Dates: start: 20150206

REACTIONS (6)
  - Wrong technique in product usage process [Unknown]
  - Upper airway obstruction [Fatal]
  - Condition aggravated [Fatal]
  - Product use issue [Unknown]
  - Drug administered to patient of inappropriate age [Unknown]
  - Spinal muscular atrophy [Fatal]
